FAERS Safety Report 5926425-0 (Version None)
Quarter: 2008Q4

REPORT INFORMATION
  Report Type: 
  Country: None (occurrence: None)
  Receive Date: 20081017
  Receipt Date: 20081009
  Transmission Date: 20090506
  Serious: Yes (Hospitalization, Disabling)
  Sender: FDA-Public Use
  Company Number: GXKR2008NO09740

PATIENT
  Age: 73 Year
  Sex: Male

DRUGS (8)
  1. SIMVASTATIN [Suspect]
     Dosage: 40 MG/DAY ORAL
     Route: 048
     Dates: start: 20071114
  2. ATACAND (CANDESARTAN CILEXETIL) TABLET, 8 MG [Suspect]
     Indication: HYPERTENSION
     Dosage: 8 MG/DAY ORAL
     Route: 048
     Dates: start: 20060202, end: 20080828
  3. NEXIUM [Concomitant]
  4. ALBYL (ACEYTLSALICYLIC ACID) [Concomitant]
  5. CARDURAN (DOXAZOSIN MESILATE) [Concomitant]
  6. SELO-ZOK (METOPOLOL SUCCINATE) [Concomitant]
  7. AMLODIPINE [Concomitant]
  8. PLAVIX [Concomitant]

REACTIONS (1)
  - INTERSTITIAL LUNG DISEASE [None]
